FAERS Safety Report 6371245-9 (Version None)
Quarter: 2009Q3

REPORT INFORMATION
  Report Type: 
  Country: None (occurrence: None)
  Receive Date: 20090923
  Receipt Date: 20081103
  Transmission Date: 20100115
  Serious: Yes (Other)
  Sender: FDA-Public Use
  Company Number: US-ASTRAZENECA-2007UW01954

PATIENT
  Age: 16055 Day
  Sex: Male
  Weight: 108.4 kg

DRUGS (8)
  1. SEROQUEL [Suspect]
     Indication: SLEEP DISORDER
     Dosage: 25 MG ONE TO TWO AT BEDTIME
     Route: 048
     Dates: start: 20050127, end: 20060404
  2. SEROQUEL [Suspect]
     Indication: DEPRESSION
     Dosage: 25 MG ONE TO TWO AT BEDTIME
     Route: 048
     Dates: start: 20050127, end: 20060404
  3. ZOLOFT [Concomitant]
     Dates: start: 19960101
  4. CLONAZEPAM [Concomitant]
     Dates: end: 20050127
  5. CELEXA [Concomitant]
  6. WELLBUTRIN XL [Concomitant]
  7. LEVITRA [Concomitant]
  8. TRAZODONE [Concomitant]

REACTIONS (3)
  - BLOOD CHOLESTEROL INCREASED [None]
  - SUICIDAL IDEATION [None]
  - TYPE 2 DIABETES MELLITUS [None]
